FAERS Safety Report 14459105 (Version 1)
Quarter: 2018Q1

REPORT INFORMATION
  Report Type: Spontaneous
  Country: IT (occurrence: IT)
  Receive Date: 20180130
  Receipt Date: 20180130
  Transmission Date: 20180509
  Serious: Yes (Hospitalization)
  Sender: FDA-Public Use
  Company Number: IT-ELI_LILLY_AND_COMPANY-IT201801009136

PATIENT
  Age: 91 Year
  Sex: Male

DRUGS (7)
  1. TRITTICO [Suspect]
     Active Substance: TRAZODONE HYDROCHLORIDE
     Indication: DEPRESSION
     Dosage: 10 GTT, DAILY
     Route: 048
     Dates: start: 20170901, end: 20171004
  2. CARDIOASPIRIN [Concomitant]
     Active Substance: ASPIRIN
     Dosage: UNK
  3. OLANZAPINE. [Suspect]
     Active Substance: OLANZAPINE
     Indication: SCHIZOPHRENIA
     Dosage: 5 MG, DAILY
     Route: 048
     Dates: start: 20170901, end: 20171004
  4. FLUXUM [Concomitant]
     Active Substance: PARNAPARIN SODIUM
     Dosage: UNK
  5. LASIX [Concomitant]
     Active Substance: FUROSEMIDE
     Dosage: UNK
  6. LEXOTAN [Concomitant]
     Active Substance: BROMAZEPAM
     Dosage: UNK
  7. OLANZAPINE. [Suspect]
     Active Substance: OLANZAPINE
     Dosage: UNK

REACTIONS (4)
  - Hyponatraemia [Unknown]
  - Vascular encephalopathy [Unknown]
  - Cognitive disorder [Unknown]
  - Dyspnoea [Unknown]

NARRATIVE: CASE EVENT DATE: 20171004
